FAERS Safety Report 5227318-7 (Version None)
Quarter: 2007Q1

REPORT INFORMATION
  Report Type: 
  Country: None (occurrence: None)
  Receive Date: 20070202
  Receipt Date: 20070119
  Transmission Date: 20070707
  Serious: Yes (Hospitalization)
  Sender: FDA-Public Use
  Company Number: JP-ELI_LILLY_AND_COMPANY-JP200607003112

PATIENT
  Age: 86 Year
  Sex: Female

DRUGS (6)
  1. EVISTA [Suspect]
     Indication: OSTEOPOROSIS
     Dosage: 60 MG, DAILY (1/D)
     Route: 048
     Dates: start: 20051213, end: 20060512
  2. ALFAROL [Concomitant]
     Indication: OSTEOPOROSIS
     Dosage: 0.5 UG, DAILY (1/D)
  3. BUFFERIN [Concomitant]
     Indication: CEREBRAL INFARCTION
     Dosage: 81 MG, DAILY (1/D)
  4. ASPARA-CA [Concomitant]
     Indication: OSTEOPOROSIS
     Dosage: 200 MG, 2/D
  5. GLAKAY [Concomitant]
     Indication: OSTEOPOROSIS
     Dosage: 15 MG, DAILY (1/D)
  6. FELBINAC [Concomitant]

REACTIONS (1)
  - PANCREATITIS ACUTE [None]
